FAERS Safety Report 9471250 (Version 1)
Quarter: 2013Q3

REPORT INFORMATION
  Report Type: Spontaneous
  Country: CH (occurrence: CH)
  Receive Date: 20130822
  Receipt Date: 20130822
  Transmission Date: 20140515
  Serious: Yes (Hospitalization, Other)
  Sender: FDA-Public Use
  Company Number: CH-TEVA-426239ISR

PATIENT
  Age: 75 Year
  Sex: Female

DRUGS (1)
  1. ALENDRON-MEPHA 70 [Suspect]
     Indication: PRODUCT USED FOR UNKNOWN INDICATION
     Dosage: 70 MILLIGRAM DAILY; TABLET^S STRENGTH: 91.37 MG
     Route: 048
     Dates: start: 201305, end: 201305

REACTIONS (2)
  - Overdose [Unknown]
  - Grand mal convulsion [Unknown]
